FAERS Safety Report 6223903-4 (Version None)
Quarter: 2009Q2

REPORT INFORMATION
  Report Type: 
  Country: None (occurrence: None)
  Receive Date: 20090612
  Receipt Date: 20090311
  Transmission Date: 20091009
  Serious: Yes (Other)
  Sender: FDA-Public Use
  Company Number: US-ABBOTT-09P-163-0560731-00

PATIENT
  Sex: Male
  Weight: 156.63 kg

DRUGS (2)
  1. HUMIRA [Suspect]
     Indication: RHEUMATOID ARTHRITIS
     Dates: start: 20070101, end: 20090201
  2. UNKNOWN CARDIAC PILL [Concomitant]
     Indication: HEART RATE INCREASED
     Dosage: UNKNOWN
     Dates: start: 19990101

REACTIONS (5)
  - EXCORIATION [None]
  - FALL [None]
  - HEAD INJURY [None]
  - HEART RATE INCREASED [None]
  - INFECTION [None]
